FAERS Safety Report 7503957-5 (Version None)
Quarter: 2011Q2

REPORT INFORMATION
  Report Type: 
  Country: None (occurrence: None)
  Receive Date: 20110518
  Receipt Date: 20110506
  Transmission Date: 20111010
  Serious: Yes (Hospitalization)
  Sender: FDA-Public Use
  Company Number: TCI2011A02824

PATIENT
  Age: 70 Year
  Sex: Female

DRUGS (6)
  1. ANTI-DIABETICS [Concomitant]
  2. ACTOS [Suspect]
     Indication: TYPE 2 DIABETES MELLITUS
     Dosage: 15 MG (15 MG, 1 D), PER ORAL
     Route: 048
     Dates: start: 20071214
  3. CALCIUM CHANNEL BLOCKERS [Concomitant]
  4. SULFONAMIDES UREA DERIVATIVES [Concomitant]
  5. BIGUANIDES [Concomitant]
  6. ANGIOTENSIN II ANTAGONISTS [Concomitant]

REACTIONS (4)
  - ASPARTATE AMINOTRANSFERASE INCREASED [None]
  - ALANINE AMINOTRANSFERASE INCREASED [None]
  - GAMMA-GLUTAMYLTRANSFERASE INCREASED [None]
  - DYSLIPIDAEMIA [None]
